FAERS Safety Report 4429600-X (Version None)
Quarter: 2004Q3

REPORT INFORMATION
  Report Type: 
  Country: None (occurrence: None)
  Receive Date: 20040816
  Receipt Date: 20040809
  Transmission Date: 20050211
  Serious: Yes (Life-Threatening)
  Sender: FDA-Public Use
  Company Number: 2004225572FR

PATIENT
  Age: 36 Year
  Sex: Female
  Weight: 94 kg

DRUGS (3)
  1. CLEOCIN [Suspect]
     Indication: ANTIBACTERIAL PROPHYLAXIS
     Dosage: 100 MG, IV
     Route: 042
     Dates: start: 20040622, end: 20040622
  2. SYNTOCINON (OXYTOCIN0 [Concomitant]
  3. MARCAINE [Concomitant]

REACTIONS (6)
  - ERYTHEMA [None]
  - HYPERSENSITIVITY [None]
  - PRURITUS [None]
  - RESPIRATORY DISORDER [None]
  - SHOCK [None]
  - VENTRICULAR EXTRASYSTOLES [None]
